FAERS Safety Report 21321352 (Version 2)
Quarter: 2022Q3

REPORT INFORMATION
  Report Type: Spontaneous
  Country: MY (occurrence: MY)
  Receive Date: 20220912
  Receipt Date: 20220924
  Transmission Date: 20221027
  Serious: Yes (Other)
  Sender: FDA-Public Use
  Company Number: MY-NOVARTISPH-NVSC2022MY204307

PATIENT
  Age: 64 Year
  Sex: Male

DRUGS (1)
  1. BROLUCIZUMAB [Suspect]
     Active Substance: BROLUCIZUMAB
     Indication: Polypoidal choroidal vasculopathy
     Dosage: UNK
     Route: 065

REACTIONS (5)
  - Iridocyclitis [Recovered/Resolved]
  - Vision blurred [Unknown]
  - Intraocular pressure increased [Unknown]
  - Blindness [Unknown]
  - Product use in unapproved indication [Unknown]
